FAERS Safety Report 15297564 (Version 1)
Quarter: 2018Q3

REPORT INFORMATION
  Report Type: Spontaneous
  Country: JP (occurrence: JP)
  Receive Date: 20180820
  Receipt Date: 20180820
  Transmission Date: 20181010
  Serious: Yes (Hospitalization, Other)
  Sender: FDA-Public Use
  Company Number: JP-BAYER-2018-152044

PATIENT
  Sex: Male

DRUGS (1)
  1. STIVARGA [Suspect]
     Active Substance: REGORAFENIB
     Dosage: 3 WEEKS ON, 1 WEEK OFF
     Route: 048
     Dates: start: 201803, end: 201808

REACTIONS (3)
  - Pneumonia [None]
  - General physical health deterioration [None]
  - Metastases to lung [None]
